FAERS Safety Report 5957809-2 (Version None)
Quarter: 2008Q4

REPORT INFORMATION
  Report Type: 
  Country: None (occurrence: None)
  Receive Date: 20081117
  Receipt Date: 20081104
  Transmission Date: 20090506
  Serious: Yes (Hospitalization)
  Sender: FDA-Public Use
  Company Number: US024487

PATIENT
  Age: 64 Year
  Sex: Male

DRUGS (10)
  1. TRISENOX [Suspect]
     Indication: ACUTE PROMYELOCYTIC LEUKAEMIA
     Dosage: 0.15 MG/KG DAILY INTRAMUSCULAR
     Route: 030
     Dates: start: 20080728, end: 20080802
  2. TRISENOX [Suspect]
     Indication: ACUTE PROMYELOCYTIC LEUKAEMIA
     Dosage: QD INTRAMUSCULAR
     Route: 030
     Dates: start: 20080818, end: 20080820
  3. TRISENOX [Suspect]
     Indication: ACUTE PROMYELOCYTIC LEUKAEMIA
     Dosage: INTRAMUSCULAR
     Route: 030
     Dates: start: 20080825, end: 20080826
  4. FLOMAX [Concomitant]
  5. MUCOFEN [Concomitant]
  6. DITROPAN [Concomitant]
  7. TRETINOIN [Concomitant]
  8. ZESTRIL [Concomitant]
  9. LASIX [Concomitant]
  10. COUMADIN [Concomitant]

REACTIONS (16)
  - CARDIAC SEPTAL DEFECT [None]
  - CHEST PAIN [None]
  - CHILLS [None]
  - CONFUSIONAL STATE [None]
  - CULTURE URINE POSITIVE [None]
  - DEEP VEIN THROMBOSIS [None]
  - EJECTION FRACTION DECREASED [None]
  - ENTEROCOCCAL INFECTION [None]
  - LEFT VENTRICULAR HYPERTROPHY [None]
  - MITRAL VALVE INCOMPETENCE [None]
  - PNEUMONIA [None]
  - PULMONARY HYPERTENSION [None]
  - SERRATIA INFECTION [None]
  - TREMOR [None]
  - TRICUSPID VALVE INCOMPETENCE [None]
  - WHITE BLOOD CELL COUNT ABNORMAL [None]
